FAERS Safety Report 7408305-7 (Version None)
Quarter: 2011Q2

REPORT INFORMATION
  Report Type: 
  Country: None (occurrence: None)
  Receive Date: 20110412
  Receipt Date: 20110401
  Transmission Date: 20111010
  Serious: Yes (Other)
  Sender: FDA-Public Use
  Company Number: DE-NOVOPROD-326004

PATIENT
  Age: 62 Year
  Sex: Male
  Weight: 100 kg

DRUGS (5)
  1. VICTOZA [Suspect]
     Indication: TYPE 2 DIABETES MELLITUS
     Dosage: 6MG/ML
     Route: 058
     Dates: start: 20101209
  2. OMEPRAZOLE [Concomitant]
     Indication: REFLUX OESOPHAGITIS
     Dosage: 20
     Route: 048
  3. LISIPLUS [Concomitant]
     Indication: HYPERTENSION
     Dosage: 10/12,5
     Route: 048
  4. METFORMIN HCL [Concomitant]
     Indication: TYPE 2 DIABETES MELLITUS
     Dosage: 2X1000
     Route: 048
  5. FELODIPINE [Concomitant]
     Indication: HYPERTENSION
     Dosage: 10
     Route: 048

REACTIONS (2)
  - RASH [None]
  - ANGIOEDEMA [None]
